FAERS Safety Report 8381610-6 (Version None)
Quarter: 2012Q2

REPORT INFORMATION
  Report Type: 
  Country: None (occurrence: None)
  Receive Date: 20120524
  Receipt Date: 20120511
  Transmission Date: 20120825
  Serious: Yes (Hospitalization, Other)
  Sender: FDA-Public Use
  Company Number: US-BAXTER-2012BH007423

PATIENT
  Sex: Male

DRUGS (6)
  1. DIANEAL [Suspect]
     Indication: PERITONEAL DIALYSIS
     Route: 033
     Dates: start: 20060927, end: 20111104
  2. DIANEAL [Suspect]
     Dates: start: 20060927, end: 20111104
  3. DIANEAL LOW CALCIUM W/ DEXTROSE 1.5% [Suspect]
     Dates: start: 20060927, end: 20111104
  4. DIANEAL [Suspect]
     Dates: start: 20060927, end: 20111104
  5. DIANEAL LOW CALCIUM W/ DEXTROSE 1.5% [Suspect]
     Indication: PERITONEAL DIALYSIS
     Dates: start: 20060927, end: 20111104
  6. DIANEAL LOW CALCIUM W/ DEXTROSE 1.5% [Suspect]
     Dates: start: 20060927, end: 20111104

REACTIONS (4)
  - UPPER GASTROINTESTINAL HAEMORRHAGE [None]
  - THROMBOSIS [None]
  - FACTOR V DEFICIENCY [None]
  - DEEP VEIN THROMBOSIS [None]
